FAERS Safety Report 8837173 (Version 1)
Quarter: 2012Q4

REPORT INFORMATION
  Report Type: 
  Country: FR (occurrence: FR)
  Receive Date: 20121011
  Receipt Date: 20121011
  Transmission Date: 20130627
  Serious: Yes (Other)
  Sender: FDA-Public Use
  Company Number: FR-ABBOTT-12P-056-0992498-00

PATIENT
  Age: 54 Year
  Sex: Male

DRUGS (2)
  1. DEPAKINE [Suspect]
     Indication: EPILEPSY
     Route: 048
     Dates: start: 19820618, end: 20120615
  2. MORPHINE DERIVATIVES [Concomitant]
     Indication: BACK PAIN

REACTIONS (1)
  - Hepatic fibrosis [Not Recovered/Not Resolved]
